FAERS Safety Report 10994798 (Version 2)
Quarter: 2015Q2

REPORT INFORMATION
  Report Type: Report from Study
  Country: DE (occurrence: DE)
  Receive Date: 20150407
  Receipt Date: 20150430
  Transmission Date: 20150821
  Serious: Yes (Death, Other)
  Sender: FDA-Public Use
  Company Number: DE-ABBVIE-15P-062-1372284-00

PATIENT
  Age: 84 Year
  Sex: Female

DRUGS (1)
  1. DUODOPA [Suspect]
     Active Substance: CARBIDOPA\LEVODOPA
     Indication: PARKINSON^S DISEASE
     Dosage: CRD 3.0 ML, CRN 2.7 ML
     Route: 050
     Dates: start: 20131202

REACTIONS (5)
  - Depression [Unknown]
  - General physical health deterioration [Fatal]
  - Femoral neck fracture [Unknown]
  - Immobile [Unknown]
  - Hypophagia [Unknown]

NARRATIVE: CASE EVENT DATE: 201412
